FAERS Safety Report 4514607-4 (Version None)
Quarter: 2004Q3

REPORT INFORMATION
  Report Type: 
  Country: None (occurrence: None)
  Receive Date: 20040927
  Receipt Date: 20040518
  Transmission Date: 20050211
  Serious: No
  Sender: FDA-Public Use
  Company Number: US076929

PATIENT
  Age: 52 Year
  Sex: Female
  Weight: 80.4 kg

DRUGS (6)
  1. NEULASTA [Suspect]
     Indication: CHEMOTHERAPY
     Dosage: 6  MG, 1 IN 1 DAYS
     Dates: start: 20040517, end: 20040517
  2. DOXORUBICIN HCL [Concomitant]
  3. CYCLOPHOSPHAMIDE [Concomitant]
  4. NEUPOGEN [Concomitant]
  5. DOLASETRON MESYLATE [Concomitant]
  6. DEXAMETHASONE [Concomitant]

REACTIONS (1)
  - URTICARIA [None]
